FAERS Safety Report 23454366 (Version 1)
Quarter: 2024Q1

REPORT INFORMATION
  Report Type: Report from Study
  Country: US (occurrence: None)
  Receive Date: 20240130
  Receipt Date: 20240130
  Transmission Date: 20240409
  Serious: Yes (Other)
  Sender: FDA-Public Use
  Company Number: 2024A021414

PATIENT
  Age: 29 Year
  Sex: Female
  Weight: 65.8 kg

DRUGS (2)
  1. KOSELUGO [Suspect]
     Active Substance: SELUMETINIB
     Indication: Neurofibromatosis
     Route: 048
  2. KOSELUGO [Suspect]
     Active Substance: SELUMETINIB
     Indication: Neurofibromatosis
     Route: 048

REACTIONS (2)
  - Visual field defect [Recovered/Resolved]
  - Corneal oedema [Recovered/Resolved]

NARRATIVE: CASE EVENT DATE: 20211101
